FAERS Safety Report 7244201-6 (Version None)
Quarter: 2011Q1

REPORT INFORMATION
  Report Type: 
  Country: None (occurrence: None)
  Receive Date: 20110125
  Receipt Date: 20110112
  Transmission Date: 20110831
  Serious: No
  Sender: FDA-Public Use
  Company Number: US-MYLANLABS-2010S1022865

PATIENT
  Age: 19 Year
  Sex: Female

DRUGS (3)
  1. ACCUTANE [Suspect]
     Route: 048
     Dates: start: 20081226
  2. AMNESTEEM [Suspect]
     Route: 048
  3. AMNESTEEM [Suspect]
     Route: 048
     Dates: end: 20090530

REACTIONS (2)
  - ABORTION INDUCED [None]
  - DRUG EXPOSURE BEFORE PREGNANCY [None]
